FAERS Safety Report 23520052 (Version 1)
Quarter: 2024Q1

REPORT INFORMATION
  Report Type: 
  Country: None (occurrence: None)
  Receive Date: 20240214
  Receipt Date: 20240214
  Transmission Date: 20240409
  Serious: No
  Sender: FDA-Public Use
  Company Number: DE-ROCHE-3259425

PATIENT

DRUGS (5)
  1. OCRELIZUMAB [Suspect]
     Active Substance: OCRELIZUMAB
     Dates: start: 20220621
  2. OCRELIZUMAB [Suspect]
     Active Substance: OCRELIZUMAB
     Dates: end: 20230630
  3. DIETARY SUPPLEMENT\HERBALS [Concomitant]
     Active Substance: DIETARY SUPPLEMENT\HERBALS
  4. MAGNESIUM [Concomitant]
     Active Substance: MAGNESIUM
  5. CHOLECALCIFEROL [Concomitant]
     Active Substance: CHOLECALCIFEROL

REACTIONS (2)
  - COVID-19 [None]
  - Maternal exposure before pregnancy [None]

NARRATIVE: CASE EVENT DATE: 20221001
